FAERS Safety Report 4579592-8 (Version None)
Quarter: 2005Q1

REPORT INFORMATION
  Report Type: 
  Country: None (occurrence: None)
  Receive Date: 20050210
  Receipt Date: 20050126
  Transmission Date: 20050727
  Serious: Yes (Death, Hospitalization)
  Sender: FDA-Public Use
  Company Number: 2004AL000823

PATIENT
  Age: 25 Year
  Sex: Female

DRUGS (7)
  1. LORAZEPAM [Suspect]
     Dosage: PO
     Route: 048
  2. DILTIAZEM HYDROCHLORIDE [Suspect]
     Dosage: PO
     Route: 048
  3. BENZOTROPINE [Suspect]
     Dosage: PO
     Route: 048
  4. ESCITALOPRAM [Suspect]
     Dosage: PO
     Route: 048
  5. ZIPRASIDONE [Concomitant]
  6. FENOFEXADINE [Concomitant]
  7. OXCARBAZEPINE [Concomitant]

REACTIONS (16)
  - ATRIAL FIBRILLATION [None]
  - BODY TEMPERATURE INCREASED [None]
  - CARDIAC ARREST [None]
  - COMA [None]
  - COMPLETED SUICIDE [None]
  - ELECTROCARDIOGRAM QT CORRECTED INTERVAL PROLONGED [None]
  - HAEMODIALYSIS [None]
  - HYPOTENSION [None]
  - HYPOXIA [None]
  - INTENTIONAL MISUSE [None]
  - NODAL RHYTHM [None]
  - PNEUMONIA ASPIRATION [None]
  - RENAL FAILURE [None]
  - RESPIRATORY ARREST [None]
  - SUPRAVENTRICULAR TACHYCARDIA [None]
  - THERAPY NON-RESPONDER [None]
